FAERS Safety Report 9011155 (Version 2)
Quarter: 2013Q1

REPORT INFORMATION
  Report Type: Report from Study
  Country: US (occurrence: US)
  Receive Date: 20130109
  Receipt Date: 20130118
  Transmission Date: 20140127
  Serious: Yes (Hospitalization)
  Sender: FDA-Public Use
  Company Number: US-JNJFOC-20130102501

PATIENT
  Age: 16 Year
  Sex: Male
  Weight: 47.2 kg

DRUGS (3)
  1. INFLIXIMAB, RECOMBINANT [Suspect]
     Indication: CROHN^S DISEASE
     Route: 042
     Dates: start: 20060907
  2. HUMIRA [Suspect]
     Indication: CROHN^S DISEASE
     Dates: start: 20081203
  3. METHOTREXATE [Concomitant]

REACTIONS (1)
  - Crohn^s disease [Recovered/Resolved]
